FAERS Safety Report 8492151-X (Version None)
Quarter: 2012Q3

REPORT INFORMATION
  Report Type: 
  Country: None (occurrence: None)
  Receive Date: 20120706
  Receipt Date: 20120703
  Transmission Date: 20120928
  Serious: Yes (Hospitalization)
  Sender: FDA-Public Use
  Company Number: PHHY2011US30360

PATIENT
  Sex: Female
  Weight: 14 kg

DRUGS (6)
  1. SABRIL [Concomitant]
     Indication: CONVULSION
     Dosage: 325 MG, BID
     Route: 048
  2. AMIODARONE HCL [Concomitant]
     Dosage: UNK UKN, UNK
  3. FLECAINIDE ACETATE [Concomitant]
     Dosage: UNK UKN, UNK
  4. AFINITOR [Suspect]
     Dosage: 3.75 MG, DAILY
     Dates: start: 20120621
  5. KEPPRA [Concomitant]
     Indication: CONVULSION
     Dosage: 300 MG, BID
     Route: 048
     Dates: start: 20101230
  6. AFINITOR [Suspect]
     Indication: TUBEROUS SCLEROSIS
     Dosage: 2.5 MG, QD
     Route: 048
     Dates: start: 20110317

REACTIONS (6)
  - DYSPNOEA [None]
  - COMPLEX PARTIAL SEIZURES [None]
  - NASOPHARYNGITIS [None]
  - COUGH [None]
  - PYREXIA [None]
  - DRUG INEFFECTIVE [None]
